FAERS Safety Report 7811543-2 (Version None)
Quarter: 2011Q4

REPORT INFORMATION
  Report Type: 
  Country: None (occurrence: None)
  Receive Date: 20111011
  Receipt Date: 20110929
  Transmission Date: 20120403
  Serious: Yes (Death)
  Sender: FDA-Public Use
  Company Number: B0753841A

PATIENT
  Age: 77 Year
  Sex: Female

DRUGS (2)
  1. CARMUSTINE [Suspect]
     Indication: CHEMOTHERAPY
  2. MELPHALAN HYDROCHLORIDE [Suspect]
     Indication: CHEMOTHERAPY

REACTIONS (16)
  - FEBRILE NEUTROPENIA [None]
  - PANCYTOPENIA [None]
  - INFECTION [None]
  - CLOSTRIDIUM DIFFICILE COLITIS [None]
  - FATIGUE [None]
  - GASTROENTERITIS ADENOVIRUS [None]
  - CYTOMEGALOVIRUS VIRAEMIA [None]
  - MUCOSAL INFLAMMATION [None]
  - CYSTITIS HAEMORRHAGIC [None]
  - TOXICITY TO VARIOUS AGENTS [None]
  - PARAINFLUENZAE VIRUS INFECTION [None]
  - MULTI-ORGAN FAILURE [None]
  - ASTHENIA [None]
  - DEHYDRATION [None]
  - VIRAEMIA [None]
  - BK VIRUS INFECTION [None]
